FAERS Safety Report 23635310 (Version 1)
Quarter: 2024Q1

REPORT INFORMATION
  Report Type: Spontaneous
  Country: GB (occurrence: GB)
  Receive Date: 20240315
  Receipt Date: 20240315
  Transmission Date: 20240410
  Serious: Yes (Other)
  Sender: FDA-Public Use
  Company Number: None

PATIENT
  Age: 74 Year
  Sex: Male
  Weight: 87 kg

DRUGS (20)
  1. RAMIPRIL [Suspect]
     Active Substance: RAMIPRIL
     Dosage: AT NIGHT
     Route: 065
     Dates: start: 20091119
  2. DOCUSATE SODIUM [Concomitant]
     Active Substance: DOCUSATE SODIUM
     Dosage: TIME INTERVAL: 0.33333333 DAYS
     Dates: start: 20230914
  3. BACTROBAN [Concomitant]
     Active Substance: MUPIROCIN CALCIUM
     Dosage: APPLY AS DIRECTED
     Dates: start: 20230914
  4. CALCIPOTRIENE [Concomitant]
     Active Substance: CALCIPOTRIENE
     Dosage: APPLY DAILY
     Dates: start: 20230914
  5. ATORVASTATIN [Concomitant]
     Active Substance: ATORVASTATIN
     Dates: start: 20230914
  6. ALLOPURINOL [Concomitant]
     Active Substance: ALLOPURINOL
     Dates: start: 20230914
  7. AMLODIPINE [Concomitant]
     Active Substance: AMLODIPINE BESYLATE
     Dates: start: 20230914
  8. AMOXICILLIN [Concomitant]
     Active Substance: AMOXICILLIN
     Dosage: TIME INTERVAL: 0.33333333 DAYS
     Dates: start: 20240219, end: 20240224
  9. CHLORHEXIDINE HYDROCHLORIDE\NEOMYCIN SULFATE [Concomitant]
     Active Substance: CHLORHEXIDINE HYDROCHLORIDE\NEOMYCIN SULFATE
     Dates: start: 20231204, end: 20231214
  10. LANSOPRAZOLE [Concomitant]
     Active Substance: LANSOPRAZOLE
     Dates: start: 20230914
  11. ALFACALCIDOL [Concomitant]
     Active Substance: ALFACALCIDOL
     Dosage: TIME INTERVAL: 0.33333333 WEEKS
     Dates: start: 20230914
  12. ASPIRIN [Concomitant]
     Active Substance: ASPIRIN
     Dates: start: 20230914
  13. EUMOVATE [Concomitant]
     Active Substance: CLOBETASONE BUTYRATE
     Dates: start: 20230914
  14. SENNA [Concomitant]
     Active Substance: SENNA LEAF\SENNOSIDES\SENNOSIDES A AND B
     Dosage: AT NIGHT,
     Dates: start: 20230914
  15. DOXAZOSIN [Concomitant]
     Active Substance: DOXAZOSIN MESYLATE
     Dates: start: 20230914
  16. GLICLAZIDE [Concomitant]
     Active Substance: GLICLAZIDE
     Dates: start: 20230914
  17. RENACET [Concomitant]
     Dosage: TAKE 1 IN THE MORNING , 2 AT MIDAY AND 2 AT 6PM
     Dates: start: 20230914
  18. LEVOTHYROXINE [Concomitant]
     Active Substance: LEVOTHYROXINE\LEVOTHYROXINE SODIUM
     Dosage: EACH MORNING,
     Dates: start: 20230914
  19. FUROSEMIDE [Concomitant]
     Active Substance: FUROSEMIDE
     Dosage: EACH MORNING
     Dates: start: 20230914
  20. LINAGLIPTIN [Concomitant]
     Active Substance: LINAGLIPTIN
     Dates: start: 20230914

REACTIONS (1)
  - Renal impairment [Recovered/Resolved]
